FAERS Safety Report 8263126-0 (Version None)
Quarter: 2012Q2

REPORT INFORMATION
  Report Type: 
  Country: None (occurrence: None)
  Receive Date: 20120405
  Receipt Date: 20120323
  Transmission Date: 20120825
  Serious: Yes (Hospitalization, Other)
  Sender: FDA-Public Use
  Company Number: US-ELI_LILLY_AND_COMPANY-US201001005797

PATIENT
  Age: 70 Year
  Sex: Female

DRUGS (6)
  1. METOPROLOL TARTRATE [Concomitant]
  2. ENALAPRIL [Concomitant]
  3. KLONOPIN [Concomitant]
  4. ZYPREXA [Suspect]
     Dosage: 7.5MG, QD
  5. ZYPREXA [Suspect]
     Dosage: 5 MG, QD
     Dates: start: 20031101, end: 20120101
  6. ZYPREXA [Suspect]
     Indication: BIPOLAR DISORDER
     Dosage: 10 MG, QD
     Dates: start: 20030901, end: 20031101

REACTIONS (5)
  - DIABETES MELLITUS [None]
  - STENT PLACEMENT [None]
  - ANAEMIA [None]
  - SOMNOLENCE [None]
  - HEPATIC ENZYME INCREASED [None]
